FAERS Safety Report 6064863-9 (Version None)
Quarter: 2009Q1

REPORT INFORMATION
  Report Type: 
  Country: None (occurrence: None)
  Receive Date: 20090204
  Receipt Date: 20090121
  Transmission Date: 20090719
  Serious: Yes (Death)
  Sender: FDA-Public Use
  Company Number: US-JNJFOC-20090105801

PATIENT
  Sex: Female
  Weight: 53.52 kg

DRUGS (10)
  1. DURAGESIC-100 [Suspect]
     Indication: DRUG USE FOR UNKNOWN INDICATION
     Route: 062
  2. OXYCODONE HCL [Concomitant]
     Route: 065
  3. HYDROCODONE [Concomitant]
     Route: 065
  4. ACETAMINOPHEN [Concomitant]
     Route: 065
  5. AMBIEN [Concomitant]
     Route: 065
  6. PROMETHAZINE HCL [Concomitant]
     Route: 065
  7. CARISOPRODOL [Concomitant]
     Route: 065
  8. MEPROBAMATE [Concomitant]
     Route: 065
  9. LORAZEPAM [Concomitant]
     Route: 065
  10. METOCLOPRAM [Concomitant]
     Route: 065

REACTIONS (2)
  - BRONCHOPNEUMONIA [None]
  - LIP AND/OR ORAL CAVITY CANCER [None]
